FAERS Safety Report 10513804 (Version 2)
Quarter: 2015Q1

REPORT INFORMATION
  Report Type: Spontaneous
  Country: US (occurrence: US)
  Receive Date: 20141013
  Receipt Date: 20150129
  Transmission Date: 20150720
  Serious: Yes (Death, Hospitalization)
  Sender: FDA-Public Use
  Company Number: US-PFIZER INC-2014277467

PATIENT
  Age: 71 Year
  Sex: Female
  Weight: 73 kg

DRUGS (1)
  1. SUTENT [Suspect]
     Active Substance: SUNITINIB MALATE
     Indication: RENAL CANCER
     Dosage: 50 MG, 1X/DAY, (FOR 14 DAYS)
     Dates: start: 201407, end: 2014

REACTIONS (3)
  - Disease progression [Fatal]
  - Heart rate irregular [Unknown]
  - Renal cancer [Fatal]

NARRATIVE: CASE EVENT DATE: 20140801
